FAERS Safety Report 7892679-7 (Version None)
Quarter: 2011Q4

REPORT INFORMATION
  Report Type: 
  Country: None (occurrence: None)
  Receive Date: 20111102
  Receipt Date: 20111020
  Transmission Date: 20120403
  Serious: Yes (Disabling)
  Sender: FDA-Public Use
  Company Number: 2011AP001731

PATIENT
  Age: 78 Year
  Sex: Female

DRUGS (14)
  1. MAGNESIUM TRISILICATE (MAGNESIUM TRISILICATE) [Concomitant]
  2. POTASSIUM BICARBONATE (POTASSIUM BICARBONATE) [Concomitant]
  3. ACETAMINOPHEN [Concomitant]
  4. ALGINIC ACID (ALGINIC ACID) [Concomitant]
  5. SODIUM ALGINATE (SODIUM ALGINATE) [Concomitant]
  6. BENDROFLUMETHIAZIDE (BENDROFLUMETHIAZIDE) [Concomitant]
  7. CALCIUM LACTATE (CALCIUM LACTATE) [Concomitant]
  8. ALUMINUM HYDROXIDE (ALUMINUM HYDROXIDE) [Concomitant]
  9. OMEPRAZOLE [Concomitant]
  10. CALCIUM PHOSPHATE (CALCIUM PHOPSHATE) [Concomitant]
  11. ALENDRONATE SODIUM [Suspect]
     Indication: OSTEOPOROTIC FRACTURE
     Dosage: 70 MG, PO
     Route: 048
     Dates: start: 20100911, end: 20110408
  12. CALCIUM CARBONATE [Concomitant]
  13. ERGOCALCIFEROL [Concomitant]
  14. SODIUM BICARBONATE IN PLASTIC CONTAINER [Concomitant]

REACTIONS (2)
  - DENTAL DISCOMFORT [None]
  - OSTEONECROSIS OF JAW [None]
